FAERS Safety Report 8401913-6 (Version None)
Quarter: 2012Q2

REPORT INFORMATION
  Report Type: 
  Country: None (occurrence: None)
  Receive Date: 20120601
  Receipt Date: 20120521
  Transmission Date: 20120825
  Serious: Yes (Other)
  Sender: FDA-Public Use
  Company Number: FR-GE HEALTHCARE MEDICAL DIAGNOSTICS-OMPQ-NO-1205S-0528

PATIENT
  Sex: Female

DRUGS (1)
  1. OMNIPAQUE 140 [Suspect]
     Indication: HEPATOBLASTOMA
     Route: 042
     Dates: start: 20120227, end: 20120227

REACTIONS (2)
  - NO ADVERSE EVENT [None]
  - EXTRAVASATION [None]
